FAERS Safety Report 14685078 (Version 1)
Quarter: 2018Q1

REPORT INFORMATION
  Report Type: Report from Study
  Country: US (occurrence: US)
  Receive Date: 20180327
  Receipt Date: 20180327
  Transmission Date: 20180509
  Serious: No
  Sender: FDA-Public Use
  Company Number: US-CLOVIS ONCOLOGY-CLO-2018-000153

PATIENT
  Sex: Female

DRUGS (1)
  1. RUBRACA [Suspect]
     Active Substance: RUCAPARIB CAMSYLATE
     Indication: OVARIAN CANCER
     Dosage: 600 MG, BID
     Route: 048
     Dates: start: 20180204

REACTIONS (11)
  - Blood pressure decreased [Unknown]
  - Nausea [Recovering/Resolving]
  - Dizziness [Unknown]
  - Lymphoedema [Unknown]
  - Neuropathy peripheral [Unknown]
  - Dysgeusia [Unknown]
  - Skin irritation [Not Recovered/Not Resolved]
  - Platelet count decreased [Recovering/Resolving]
  - Hepatic enzyme increased [Not Recovered/Not Resolved]
  - Blood pressure increased [Unknown]
  - Flatulence [Unknown]

NARRATIVE: CASE EVENT DATE: 2018
